FAERS Safety Report 24333948 (Version 1)
Quarter: 2024Q3

REPORT INFORMATION
  Report Type: Spontaneous
  Country: US (occurrence: US)
  Receive Date: 20240918
  Receipt Date: 20240918
  Transmission Date: 20241017
  Serious: No
  Sender: SANOFI AVENTIS
  Company Number: US-SA-2024SA268195

PATIENT
  Age: 91 Year

DRUGS (1)
  1. MULTAQ [Suspect]
     Active Substance: DRONEDARONE
     Indication: Cardiac failure congestive
     Dosage: 1 DF, BID
     Route: 048

REACTIONS (1)
  - Off label use [Unknown]
